FAERS Safety Report 13948452 (Version 1)
Quarter: 2017Q3

REPORT INFORMATION
  Report Type: Spontaneous
  Country: US (occurrence: None)
  Receive Date: 20170907
  Receipt Date: 20170907
  Transmission Date: 20171128
  Serious: Yes (Hospitalization)
  Sender: FDA-Public Use
  Company Number: None

PATIENT
  Age: 68 Year
  Sex: Female
  Weight: 85.3 kg

DRUGS (1)
  1. ISOVUE [Suspect]
     Active Substance: IOPAMIDOL
     Indication: B-CELL LYMPHOMA
     Route: 042
     Dates: start: 20170905

REACTIONS (2)
  - Contrast media reaction [None]
  - Eyelid oedema [None]

NARRATIVE: CASE EVENT DATE: 20170905
